FAERS Safety Report 8517733-8 (Version None)
Quarter: 2012Q3

REPORT INFORMATION
  Report Type: 
  Country: None (occurrence: None)
  Receive Date: 20120718
  Receipt Date: 20120605
  Transmission Date: 20120928
  Serious: Yes (Other)
  Sender: FDA-Public Use
  Company Number: DE-ASTRAZENECA-2012SE15046

PATIENT
  Age: 72 Year
  Sex: Male
  Weight: 77 kg

DRUGS (17)
  1. SIMVASTATIN [Concomitant]
     Route: 048
  2. PROTEIN [Concomitant]
  3. LEVOTHYROXINE SODIUM [Concomitant]
     Route: 048
  4. MOXIFLOXACIN/CEFTAZIDINE [Concomitant]
  5. TORSEMIDE [Concomitant]
     Dosage: 5 MG TUESDAY, THURSDAY, SATAURDAY, SUNDAY
     Route: 048
  6. MEROPENEM [Suspect]
     Indication: PNEUMONIA
     Route: 042
  7. ASPIRIN [Concomitant]
     Route: 048
  8. BISOPROLOL FUMARATE [Concomitant]
     Route: 048
  9. PANTOPRAZOLE [Concomitant]
     Route: 048
  10. HEPARIN [Concomitant]
     Route: 058
  11. TORSEMIDE [Concomitant]
     Dosage: 10 MG MONDAY, WEDNESDAY, FRIDAY
     Route: 048
  12. HEPARIN [Concomitant]
     Route: 058
  13. BRILINTA [Suspect]
     Route: 048
  14. SELENIUM [Concomitant]
  15. CIPROFLOXACIN [Concomitant]
  16. ZINC SULFATE [Concomitant]
  17. POTASSIUM CHLORIDE [Concomitant]

REACTIONS (9)
  - LOBAR PNEUMONIA [None]
  - DEVICE RELATED INFECTION [None]
  - DYSPNOEA [None]
  - NORMOCHROMIC NORMOCYTIC ANAEMIA [None]
  - PANIC ATTACK [None]
  - BLOOD POTASSIUM DECREASED [None]
  - BRADYARRHYTHMIA [None]
  - BLOOD URIC ACID INCREASED [None]
  - DEPRESSED MOOD [None]
